FAERS Safety Report 9853289 (Version 1)
Quarter: 2014Q1

REPORT INFORMATION
  Report Type: Spontaneous
  Country: GB (occurrence: None)
  Receive Date: 20140127
  Receipt Date: 20140127
  Transmission Date: 20141002
  Serious: Yes (Other)
  Sender: FDA-Public Use
  Company Number: KAD201401-000085

PATIENT
  Sex: Female

DRUGS (8)
  1. RIBAVIRIN (RIBAVIRIN) [Suspect]
     Indication: HEPATITIS C
     Dates: start: 20131018, end: 20131031
  2. INCIVO (TELAPREVIR) [Suspect]
     Indication: HEPATITIS C
     Route: 048
     Dates: start: 20131018, end: 20131031
  3. PEGYLATED INTERFERON [Suspect]
     Indication: HEPATITIS C
     Route: 058
     Dates: start: 20131018, end: 20131031
  4. PLPI206363/1121 STAR PHARMS CALCICHEW D3 FORTE (CALCIUM CARBONATE, CHOLECALCIFEROL) [Concomitant]
  5. CETIRIZINE (CETIRIZINE) [Concomitant]
  6. MILK THISTLE (SILYBUM MARIANUM) [Concomitant]
  7. PARACETAMOL (PARACETAMOL) [Concomitant]
  8. LEKOVIT CA (CHOLECALCIFEROL, CALCIUM) [Concomitant]

REACTIONS (1)
  - Blood creatinine increased [None]
